FAERS Safety Report 5276581-5 (Version None)
Quarter: 2007Q1

REPORT INFORMATION
  Report Type: 
  Country: None (occurrence: None)
  Receive Date: 20070327
  Receipt Date: 20070315
  Transmission Date: 20070707
  Serious: Yes (Other)
  Sender: FDA-Public Use
  Company Number: US-JNJFOC-20070205455

PATIENT
  Sex: Female
  Weight: 80.29 kg

DRUGS (6)
  1. REMICADE [Suspect]
     Route: 042
  2. REMICADE [Suspect]
     Indication: RHEUMATOID ARTHRITIS
     Route: 042
  3. FOSAMAX [Concomitant]
  4. DIOVAN [Concomitant]
  5. ASPIRIN [Concomitant]
  6. ULTRAM [Concomitant]
     Indication: PAIN
     Dosage: DOSE: PRN IN AM

REACTIONS (6)
  - CARPAL TUNNEL SYNDROME [None]
  - FEELING HOT [None]
  - HYPOAESTHESIA [None]
  - KERATITIS [None]
  - PARAESTHESIA [None]
  - PERIPHERAL COLDNESS [None]
